FAERS Safety Report 7795115-4 (Version None)
Quarter: 2011Q4

REPORT INFORMATION
  Report Type: 
  Country: None (occurrence: None)
  Receive Date: 20111004
  Receipt Date: 20110923
  Transmission Date: 20120403
  Serious: Yes (Hospitalization)
  Sender: FDA-Public Use
  Company Number: FR-JNJFOC-20110910188

PATIENT
  Sex: Male
  Weight: 4.15 kg

DRUGS (2)
  1. HALDOL [Suspect]
     Indication: MATERNAL EXPOSURE DURING PREGNANCY
     Route: 064
     Dates: end: 20110726
  2. PRAZEPAM [Suspect]
     Indication: MATERNAL EXPOSURE DURING PREGNANCY
     Route: 064
     Dates: end: 20110726

REACTIONS (4)
  - GASTROOESOPHAGEAL REFLUX DISEASE [None]
  - WITHDRAWAL SYNDROME [None]
  - MALAISE [None]
  - BLOOD PH INCREASED [None]
